FAERS Safety Report 23169670 (Version 1)
Quarter: 2023Q4

REPORT INFORMATION
  Report Type: Spontaneous
  Country: CN (occurrence: CN)
  Receive Date: 20231110
  Receipt Date: 20231110
  Transmission Date: 20240110
  Serious: Yes (Other)
  Sender: FDA-Public Use
  Company Number: CN-ABBVIE-5487075

PATIENT
  Age: 75 Year
  Sex: Female
  Weight: 56 kg

DRUGS (4)
  1. VENETOCLAX [Suspect]
     Active Substance: VENETOCLAX
     Indication: Acute leukaemia
     Dosage: 400 MILLIGRAM
     Route: 048
     Dates: start: 20230930, end: 20231009
  2. VENETOCLAX [Suspect]
     Active Substance: VENETOCLAX
     Indication: Acute leukaemia
     Dosage: 200 MILLIGRAM
     Route: 048
     Dates: start: 20230929, end: 20230929
  3. VENETOCLAX [Suspect]
     Active Substance: VENETOCLAX
     Indication: Acute leukaemia
     Dosage: 100 MILLIGRAM
     Route: 048
     Dates: start: 20230928, end: 20230928
  4. AZACITIDINE [Concomitant]
     Active Substance: AZACITIDINE
     Indication: Acute leukaemia
     Dosage: 100 MILLIGRAM
     Dates: start: 20230928, end: 20231004

REACTIONS (3)
  - Agranulocytosis [Unknown]
  - Rash erythematous [Recovering/Resolving]
  - Pruritus [Recovering/Resolving]

NARRATIVE: CASE EVENT DATE: 20231003
